FAERS Safety Report 10422949 (Version 1)
Quarter: 2014Q3

REPORT INFORMATION
  Report Type: Spontaneous
  Country: US (occurrence: None)
  Receive Date: 20140709
  Receipt Date: 20140709
  Transmission Date: 20150326
  Serious: Yes (Hospitalization, Other)
  Sender: FDA-Public Use
  Company Number: PHEH2013US020675

PATIENT
  Age: 79 Year
  Sex: Female

DRUGS (18)
  1. OXYCONTIN [Concomitant]
     Active Substance: OXYCODONE HYDROCHLORIDE
  2. XOPENEX (LEVOSALBUTAMOL HYDROCHLORIDE) [Concomitant]
  3. GLEEVEC [Suspect]
     Active Substance: IMATINIB MESYLATE
     Indication: LEUKAEMIA
     Route: 048
  4. BENZOATE (BENZOATE) [Concomitant]
  5. LASIX [Concomitant]
     Active Substance: FUROSEMIDE
  6. GLIMEPIRIDE (GLIMEPIRIDE) [Concomitant]
     Active Substance: GLIMEPIRIDE
  7. METOPROLOL (METOPROLOL) [Concomitant]
     Active Substance: METOPROLOL
  8. TRAZODONE [Concomitant]
     Active Substance: TRAZODONE HYDROCHLORIDE
  9. ALBUTEROL (SALBUTAMOL) [Concomitant]
     Active Substance: ALBUTEROL
  10. VIT D (ERGOCALCIFEROL) [Concomitant]
     Active Substance: ERGOCALCIFEROL
  11. LORAZEPAM (LORAZEPAM) [Concomitant]
     Active Substance: LORAZEPAM
  12. COUMADIN [Concomitant]
     Active Substance: WARFARIN SODIUM
  13. ONDANSETRON. [Concomitant]
     Active Substance: ONDANSETRON
  14. TEMAZEPAM (TEMAZEPAM) [Concomitant]
     Active Substance: TEMAZEPAM
  15. ALLOPURINOL (ALLOPURINOL) [Concomitant]
     Active Substance: ALLOPURINOL
  16. OXYCODONE (OXYCODONE) [Concomitant]
     Active Substance: OXYCODONE
  17. GABAPENTIN (GABAPENTIN) [Concomitant]
     Active Substance: GABAPENTIN
  18. PROCHLORPERAZINE MALEATE (PROCHLORPERAZINE MALEATE) [Concomitant]
     Active Substance: PROCHLORPERAZINE MALEATE

REACTIONS (1)
  - Cardiac failure congestive [None]
